FAERS Safety Report 5737184-9 (Version None)
Quarter: 2008Q2

REPORT INFORMATION
  Report Type: 
  Country: None (occurrence: None)
  Receive Date: 20080512
  Receipt Date: 20080512
  Transmission Date: 20081010
  Serious: Yes (Death)
  Sender: FDA-Public Use
  Company Number: None

PATIENT
  Age: 71 Year
  Sex: Male
  Weight: 104.3273 kg

DRUGS (1)
  1. DIGITEK  0.125 MG  ACTAVIS TOTOWA LLC [Suspect]
     Indication: ATRIAL FIBRILLATION
     Dosage: (DURATION: OVER 7 YEARS)

REACTIONS (2)
  - CARDIAC ARREST [None]
  - PHARMACEUTICAL PRODUCT COMPLAINT [None]
